FAERS Safety Report 12930304 (Version 2)
Quarter: 2016Q4

REPORT INFORMATION
  Report Type: Spontaneous
  Country: JP (occurrence: JP)
  Receive Date: 20161110
  Receipt Date: 20161227
  Transmission Date: 20170207
  Serious: Yes (Hospitalization, Other)
  Sender: FDA-Public Use
  Company Number: PHJP2016JP031896

PATIENT
  Age: 29 Year
  Sex: Female

DRUGS (1)
  1. ARTEMETHER+LUMEFANTRINE [Suspect]
     Active Substance: ARTEMETHER\LUMEFANTRINE
     Indication: PLASMODIUM FALCIPARUM INFECTION
     Dosage: 4 DF, (1 TABLET CONTAINING 20 MG ARTEMETHER AND 120 MG LUMEFANTRINE)
     Route: 048

REACTIONS (16)
  - Liver palpable [Unknown]
  - Haemoglobinuria [Unknown]
  - Acute kidney injury [Unknown]
  - Pyrexia [Recovered/Resolved]
  - Chromaturia [Unknown]
  - Jaundice [Unknown]
  - Intravascular haemolysis [Recovered/Resolved]
  - Costovertebral angle tenderness [Unknown]
  - Chills [Unknown]
  - Haemolytic anaemia [Recovering/Resolving]
  - Plasmodium falciparum infection [Unknown]
  - Yellow skin [Unknown]
  - Blood creatinine increased [Recovering/Resolving]
  - Headache [Unknown]
  - Gastrointestinal hypermotility [Unknown]
  - Urine output decreased [Unknown]
